FAERS Safety Report 22094392 (Version 2)
Quarter: 2023Q1

REPORT INFORMATION
  Report Type: Spontaneous
  Country: US (occurrence: US)
  Receive Date: 20230314
  Receipt Date: 20230316
  Transmission Date: 20230418
  Serious: Yes (Hospitalization)
  Sender: FDA-Public Use
  Company Number: US-SMITH AND NEPHEW, INC-2023SMT00014

PATIENT
  Age: 50 Year
  Sex: Female

DRUGS (1)
  1. COLLAGENASE SANTYL [Suspect]
     Active Substance: COLLAGENASE CLOSTRIDIUM HISTOLYTICUM
     Indication: Wound
     Dosage: UNK
     Dates: start: 202301

REACTIONS (2)
  - Wound complication [Recovering/Resolving]
  - Therapeutic product effect incomplete [Recovering/Resolving]

NARRATIVE: CASE EVENT DATE: 20230201
